FAERS Safety Report 9152417 (Version 3)
Quarter: 2013Q3

REPORT INFORMATION
  Report Type: Report from Study
  Country: DE (occurrence: DE)
  Receive Date: 20130308
  Receipt Date: 20130821
  Transmission Date: 20140515
  Serious: Yes (Other)
  Sender: FDA-Public Use
  Company Number: DE-CELGENEUS-062-21880-13024094

PATIENT
  Age: 81 Year
  Sex: Male
  Weight: 75 kg

DRUGS (10)
  1. REVLIMID [Suspect]
     Dosage: 5 MILLIGRAM
     Route: 048
     Dates: start: 20130619, end: 20130709
  2. ASA [Concomitant]
     Indication: ANTICOAGULANT THERAPY
     Dosage: 100 MILLIGRAM
     Route: 048
  3. OXYGENIC [Concomitant]
     Indication: PAIN PROPHYLAXIS
     Route: 048
  4. OXYGENIC [Concomitant]
     Dosage: 30 MILLIGRAM
     Route: 048
  5. CLINDAHEXAL [Concomitant]
     Indication: INFECTION PROPHYLAXIS
     Route: 048
     Dates: start: 20130110
  6. TORASEMID [Concomitant]
     Indication: DIURETIC THERAPY
     Route: 048
  7. DEXAMETHASONE [Concomitant]
     Indication: PLASMA CELL MYELOMA
     Route: 048
     Dates: start: 20100503
  8. REVLIMID [Suspect]
     Indication: PLASMA CELL MYELOMA
     Dosage: 25 MILLIGRAM
     Route: 048
     Dates: start: 20100503, end: 20100523
  9. REVLIMID [Suspect]
     Dosage: 5 MILLIGRAM
     Route: 048
     Dates: start: 20130107, end: 20130127
  10. REVLIMID [Suspect]
     Dosage: 5 MILLIGRAM
     Route: 048
     Dates: start: 20130204, end: 20130224

REACTIONS (3)
  - Basal cell carcinoma [Recovered/Resolved]
  - Basal cell carcinoma [Recovered/Resolved]
  - Thrombophlebitis [Not Recovered/Not Resolved]
